FAERS Safety Report 4796562-5 (Version None)
Quarter: 2005Q3

REPORT INFORMATION
  Report Type: 
  Country: None (occurrence: None)
  Receive Date: 20050916
  Receipt Date: 20041007
  Transmission Date: 20060218
  Serious: Yes (Other)
  Sender: FDA-Public Use
  Company Number: US-JNJFOC-20041002788

PATIENT
  Sex: Female
  Weight: 90.7194 kg

DRUGS (3)
  1. TOPAMAX [Suspect]
     Indication: EPILEPSY
     Dosage: 100 MG, 1 IN 1 DAY, ORAL
     Route: 048
     Dates: start: 20040701
  2. NEURONTIN [Concomitant]
  3. DILANTIN (PHENYTOIN SODIUM) CAPSULES [Concomitant]

REACTIONS (1)
  - WEIGHT INCREASED [None]
